FAERS Safety Report 8406454 (Version 3)
Quarter: 2013Q2

REPORT INFORMATION
  Report Type: Spontaneous
  Country: US (occurrence: US)
  Receive Date: 20120215
  Receipt Date: 20130524
  Transmission Date: 20140414
  Serious: Yes (Hospitalization, Disabling)
  Sender: FDA-Public Use
  Company Number: US-BAYER-2012-013799

PATIENT
  Age: 26 Year
  Sex: Female

DRUGS (13)
  1. YASMIN [Suspect]
     Dosage: UNK
     Dates: start: 20020918, end: 20060408
  2. CEREBYX [Concomitant]
  3. DECADRON [Concomitant]
  4. PHENERGAN [Concomitant]
  5. ATIVAN [Concomitant]
  6. ZOFRAN [Concomitant]
  7. CAPTOPRIL [Concomitant]
  8. COREG [Concomitant]
  9. LASIX [Concomitant]
  10. VANCOMYCIN [Concomitant]
  11. FLUCONAZOLE [Concomitant]
  12. PEPCID [Concomitant]
  13. PHENYTOIN [Concomitant]

REACTIONS (3)
  - Cerebrovascular accident [None]
  - Cerebrovascular accident [None]
  - Deep vein thrombosis [None]
